FAERS Safety Report 4627485-X (Version None)
Quarter: 2005Q1

REPORT INFORMATION
  Report Type: 
  Country: None (occurrence: None)
  Receive Date: 20050330
  Receipt Date: 20050316
  Transmission Date: 20050727
  Serious: Yes (Hospitalization)
  Sender: FDA-Public Use
  Company Number: 2005BI003163

PATIENT
  Age: 64 Year
  Sex: Female

DRUGS (13)
  1. AVONEX [Suspect]
     Indication: MULTIPLE SCLEROSIS
     Dosage: 30 UG; QW; IM
     Route: 030
     Dates: start: 20011018, end: 20030628
  2. AVONEX [Suspect]
     Indication: MULTIPLE SCLEROSIS
     Dosage: 30 UG; QW; IM
     Route: 030
     Dates: start: 20030926
  3. COMBIVENT [Concomitant]
  4. ALBUTEROL [Concomitant]
  5. ADVAIR DISKUS 100/50 [Concomitant]
  6. SPIRIVA [Concomitant]
  7. PREVACID [Concomitant]
  8. PROVIGIL [Concomitant]
  9. NORVASC [Concomitant]
  10. ARICEPT [Concomitant]
  11. WELLBUTRIN [Concomitant]
  12. PREMARIN [Concomitant]
  13. NEURONTIN [Concomitant]

REACTIONS (3)
  - BACTERIAL INFECTION [None]
  - BRONCHITIS ACUTE [None]
  - CHRONIC OBSTRUCTIVE AIRWAYS DISEASE EXACERBATED [None]
